FAERS Safety Report 16049551 (Version 2)
Quarter: 2019Q1

REPORT INFORMATION
  Report Type: Spontaneous
  Country: US (occurrence: US)
  Receive Date: 20190307
  Receipt Date: 20190314
  Transmission Date: 20190418
  Serious: Yes (Hospitalization, Other)
  Sender: FDA-Public Use
  Company Number: US-009507513-1902USA010958

PATIENT
  Age: 59 Year
  Sex: Male

DRUGS (2)
  1. SINEMET [Suspect]
     Active Substance: CARBIDOPA\LEVODOPA
     Dosage: ONE AT SUPPER AND ONE AT BEDTIME
     Route: 048
  2. MIRAPEX [Suspect]
     Active Substance: PRAMIPEXOLE DIHYDROCHLORIDE
     Dosage: UNK

REACTIONS (7)
  - Rehabilitation therapy [Unknown]
  - Libido increased [Unknown]
  - Somnolence [Unknown]
  - Erectile dysfunction [Unknown]
  - Parkinson^s disease [Unknown]
  - Adverse event [Unknown]
  - Seizure [Unknown]
